FAERS Safety Report 19771380 (Version 1)
Quarter: 2021Q3

REPORT INFORMATION
  Report Type: Spontaneous
  Country: US (occurrence: US)
  Receive Date: 20210830
  Receipt Date: 20210830
  Transmission Date: 20211014
  Serious: No
  Sender: FDA-Public Use
  Company Number: None

PATIENT
  Sex: Female

DRUGS (1)
  1. KISQALI [Suspect]
     Active Substance: RIBOCICLIB
     Indication: BREAST CANCER
     Route: 048
     Dates: start: 20210601, end: 20210801

REACTIONS (10)
  - Dry eye [None]
  - Fatigue [None]
  - White blood cell count decreased [None]
  - Blister [None]
  - Dry skin [None]
  - Hepatic enzyme increased [None]
  - Constipation [None]
  - Neutrophil count decreased [None]
  - Red blood cell count decreased [None]
  - Platelet count decreased [None]
